FAERS Safety Report 20946533 (Version 1)
Quarter: 2022Q2

REPORT INFORMATION
  Report Type: Spontaneous
  Country: US (occurrence: US)
  Receive Date: 20220610
  Receipt Date: 20220610
  Transmission Date: 20220721
  Serious: No
  Sender: FDA-Public Use
  Company Number: US-GLAXOSMITHKLINE-USCH2022020182

PATIENT
  Sex: Male

DRUGS (1)
  1. NICODERM CQ [Suspect]
     Active Substance: NICOTINE
     Indication: Product used for unknown indication
     Dosage: 1 DF, QD
     Dates: start: 20220605, end: 20220605

REACTIONS (3)
  - Application site erythema [Not Recovered/Not Resolved]
  - Application site vesicles [Unknown]
  - Application site irritation [Unknown]

NARRATIVE: CASE EVENT DATE: 20220605
